FAERS Safety Report 8036253-0 (Version None)
Quarter: 2012Q1

REPORT INFORMATION
  Report Type: 
  Country: None (occurrence: None)
  Receive Date: 20120111
  Receipt Date: 20120103
  Transmission Date: 20120608
  Serious: Yes (Hospitalization)
  Sender: FDA-Public Use
  Company Number: FR-ELI_LILLY_AND_COMPANY-FR201201000249

PATIENT
  Sex: Male

DRUGS (15)
  1. TAMSULOSIN HCL [Concomitant]
  2. PRIMPERAN TAB [Concomitant]
  3. STABLON [Concomitant]
  4. INSULATARD NPH HUMAN [Concomitant]
  5. CISPLATIN [Concomitant]
  6. GAVISCON                           /00237601/ [Concomitant]
  7. SIMVASTATIN [Concomitant]
  8. GEMZAR [Suspect]
     Indication: BILE DUCT CANCER
     Dosage: 1000 MG/M2, UNKNOWN
     Route: 042
     Dates: start: 20110216, end: 20110620
  9. NEXIUM [Concomitant]
  10. ASPIRIN [Concomitant]
  11. METOPROLOL TARTRATE [Concomitant]
  12. RAMIPRIL [Concomitant]
  13. ALPRAZOLAM [Concomitant]
  14. TROSPIUM CHLORIDE [Concomitant]
  15. OMACOR [Concomitant]

REACTIONS (4)
  - NEUROPATHY PERIPHERAL [None]
  - OEDEMA PERIPHERAL [None]
  - SYSTEMIC INFLAMMATORY RESPONSE SYNDROME [None]
  - NEURALGIA [None]
